FAERS Safety Report 15754373 (Version 2)
Quarter: 2018Q4

REPORT INFORMATION
  Report Type: Spontaneous
  Country: US (occurrence: US)
  Receive Date: 20181224
  Receipt Date: 20181231
  Transmission Date: 20190205
  Serious: Yes (Other)
  Sender: FDA-Public Use
  Company Number: US-CIPLA LTD.-2018US23842

PATIENT

DRUGS (3)
  1. NADOLOL. [Suspect]
     Active Substance: NADOLOL
     Dosage: UNK, GENERIC
     Route: 065
  2. NADOLOL. [Suspect]
     Active Substance: NADOLOL
     Dosage: UNK, CIPLA
     Route: 065
     Dates: start: 2018, end: 2018
  3. NADOLOL. [Suspect]
     Active Substance: NADOLOL
     Indication: MITRAL VALVE PROLAPSE
     Dosage: UNK, GENERIC
     Route: 065

REACTIONS (7)
  - Paraesthesia [Recovered/Resolved]
  - Hypoaesthesia [Recovered/Resolved]
  - Drug ineffective for unapproved indication [Unknown]
  - Product quality issue [Unknown]
  - Palpitations [Recovered/Resolved]
  - Product substitution issue [Unknown]
  - Off label use [Unknown]

NARRATIVE: CASE EVENT DATE: 2018
